FAERS Safety Report 14870975 (Version 1)
Quarter: 2018Q2

REPORT INFORMATION
  Report Type: Spontaneous
  Country: CN (occurrence: CN)
  Receive Date: 20180509
  Receipt Date: 20180509
  Transmission Date: 20180711
  Serious: Yes (Other)
  Sender: FDA-Public Use
  Company Number: CN-PFIZER INC-2018182815

PATIENT
  Age: 65 Year
  Sex: Male
  Weight: 51 kg

DRUGS (2)
  1. LIPITOR [Suspect]
     Active Substance: ATORVASTATIN CALCIUM
     Dosage: 1 TABLET, 1X/DAY
     Route: 048
     Dates: start: 2015, end: 20180430
  2. BAYASPIRIN [Concomitant]
     Active Substance: ASPIRIN
     Dosage: 1 TABLET, 1X/DAY
     Route: 048
     Dates: start: 2015

REACTIONS (2)
  - Renal failure [Not Recovered/Not Resolved]
  - Blood bilirubin increased [Not Recovered/Not Resolved]

NARRATIVE: CASE EVENT DATE: 201703
